FAERS Safety Report 13311331 (Version 3)
Quarter: 2017Q4

REPORT INFORMATION
  Report Type: Spontaneous
  Country: US (occurrence: US)
  Receive Date: 20170309
  Receipt Date: 20171123
  Transmission Date: 20180320
  Serious: No
  Sender: FDA-Public Use
  Company Number: US-JNJFOC-20150702920

PATIENT
  Age: 13 Year
  Sex: Male

DRUGS (18)
  1. RISPERIDONE. [Suspect]
     Active Substance: RISPERIDONE
     Indication: OPPOSITIONAL DEFIANT DISORDER
     Route: 048
     Dates: start: 20110323, end: 20110328
  2. RISPERDAL [Suspect]
     Active Substance: RISPERIDONE
     Indication: DEPRESSION
     Route: 048
     Dates: start: 20080111
  3. RISPERDAL [Suspect]
     Active Substance: RISPERIDONE
     Indication: ANXIETY
     Route: 048
     Dates: start: 20021018, end: 20040526
  4. RISPERIDONE. [Suspect]
     Active Substance: RISPERIDONE
     Indication: DEPRESSION
     Route: 048
     Dates: start: 20110106, end: 20110322
  5. RISPERDAL [Suspect]
     Active Substance: RISPERIDONE
     Indication: OPPOSITIONAL DEFIANT DISORDER
     Route: 048
     Dates: start: 20021018, end: 20040526
  6. RISPERDAL [Suspect]
     Active Substance: RISPERIDONE
     Indication: DEPRESSION
     Route: 048
     Dates: start: 20070902, end: 20071224
  7. RISPERDAL [Suspect]
     Active Substance: RISPERIDONE
     Indication: ANXIETY
     Route: 048
     Dates: start: 20070902, end: 20071224
  8. RISPERIDONE. [Suspect]
     Active Substance: RISPERIDONE
     Indication: ANXIETY
     Route: 048
     Dates: start: 20110106, end: 20110322
  9. RISPERDAL [Suspect]
     Active Substance: RISPERIDONE
     Indication: OPPOSITIONAL DEFIANT DISORDER
     Route: 048
     Dates: start: 20080111
  10. RISPERDAL [Suspect]
     Active Substance: RISPERIDONE
     Indication: DEPRESSION
     Route: 048
     Dates: start: 20021018, end: 20040526
  11. RISPERIDONE. [Suspect]
     Active Substance: RISPERIDONE
     Indication: DEPRESSION
     Route: 048
     Dates: start: 20110323, end: 20110328
  12. RISPERDAL [Suspect]
     Active Substance: RISPERIDONE
     Indication: OPPOSITIONAL DEFIANT DISORDER
     Route: 048
     Dates: start: 20070902, end: 20071224
  13. RISPERDAL [Suspect]
     Active Substance: RISPERIDONE
     Indication: ANXIETY
     Route: 048
     Dates: start: 20080111
  14. RISPERDAL [Suspect]
     Active Substance: RISPERIDONE
     Indication: BIPOLAR DISORDER
     Route: 048
     Dates: start: 20021018, end: 20040526
  15. RISPERIDONE. [Suspect]
     Active Substance: RISPERIDONE
     Indication: ANXIETY
     Route: 048
     Dates: start: 20110323, end: 20110328
  16. RISPERDAL [Suspect]
     Active Substance: RISPERIDONE
     Indication: BIPOLAR DISORDER
     Route: 048
     Dates: start: 20080111
  17. RISPERDAL [Suspect]
     Active Substance: RISPERIDONE
     Indication: BIPOLAR DISORDER
     Route: 048
     Dates: start: 20070902, end: 20071224
  18. RISPERIDONE. [Suspect]
     Active Substance: RISPERIDONE
     Indication: OPPOSITIONAL DEFIANT DISORDER
     Route: 048
     Dates: start: 20110106, end: 20110322

REACTIONS (6)
  - Emotional disorder [Unknown]
  - Abnormal weight gain [Unknown]
  - Off label use [Unknown]
  - Gynaecomastia [Unknown]
  - Blood ketone body [Unknown]
  - Product use in unapproved indication [Unknown]

NARRATIVE: CASE EVENT DATE: 200812
